FAERS Safety Report 17698800 (Version 12)
Quarter: 2022Q1

REPORT INFORMATION
  Report Type: Report from Study
  Country: CA (occurrence: CA)
  Receive Date: 20200423
  Receipt Date: 20220129
  Transmission Date: 20220424
  Serious: Yes (Hospitalization, Other)
  Sender: FDA-Public Use
  Company Number: NVSC2020CA079133

PATIENT
  Age: 51 Year
  Sex: Female
  Weight: 51.6 kg

DRUGS (8)
  1. SANDOSTATIN LAR DEPOT [Suspect]
     Active Substance: OCTREOTIDE ACETATE
     Indication: Carcinoid tumour
     Dosage: 30 MG, Q4W
     Route: 030
     Dates: start: 20200122
  2. SANDOSTATIN LAR DEPOT [Suspect]
     Active Substance: OCTREOTIDE ACETATE
     Indication: Small intestine carcinoma
     Dosage: 30 MG, Q4W (SYRINGE)
     Route: 030
     Dates: start: 20200413
  3. SANDOSTATIN LAR DEPOT [Suspect]
     Active Substance: OCTREOTIDE ACETATE
     Dosage: 30 MG, Q4W (VIAL)
     Route: 030
     Dates: start: 20200413
  4. SANDOSTATIN LAR DEPOT [Suspect]
     Active Substance: OCTREOTIDE ACETATE
     Dosage: 60 MG, Q3W
     Route: 030
     Dates: start: 20200122, end: 20201010
  5. SANDOSTATIN LAR DEPOT [Suspect]
     Active Substance: OCTREOTIDE ACETATE
     Dosage: 60 MG, Q2W
     Route: 030
  6. SANDOSTATIN LAR DEPOT [Suspect]
     Active Substance: OCTREOTIDE ACETATE
     Dosage: 60 MG (2 WEEKS)
     Route: 030
     Dates: start: 20210513
  7. LANREOTIDE [Suspect]
     Active Substance: LANREOTIDE
     Indication: Product used for unknown indication
     Dosage: UNK
     Route: 065
  8. FUROSEMIDE [Concomitant]
     Active Substance: FUROSEMIDE
     Indication: Product used for unknown indication
     Dosage: 20 MG, BID
     Route: 048
     Dates: start: 20200219

REACTIONS (17)
  - Post procedural complication [Unknown]
  - Urine output decreased [Recovered/Resolved with Sequelae]
  - Stoma site haemorrhage [Unknown]
  - Stoma obstruction [Recovered/Resolved]
  - Haemoglobin decreased [Unknown]
  - Oedema [Unknown]
  - Secretion discharge [Unknown]
  - Cystitis [Unknown]
  - Hypotension [Unknown]
  - Pyrexia [Unknown]
  - Fatigue [Unknown]
  - Abdominal pain [Unknown]
  - Injection site mass [Unknown]
  - Drug intolerance [Unknown]
  - Incorrect dose administered [Unknown]
  - Inappropriate schedule of product administration [Unknown]
  - Needle issue [Unknown]

NARRATIVE: CASE EVENT DATE: 20200301
